FAERS Safety Report 17952970 (Version 1)
Quarter: 2020Q2

REPORT INFORMATION
  Report Type: Spontaneous
  Country: US (occurrence: US)
  Receive Date: 20200627
  Receipt Date: 20200627
  Transmission Date: 20200714
  Serious: No
  Sender: FDA-Public Use
  Company Number: US-ASTRAZENECA-2020SE79681

PATIENT
  Age: 19480 Day
  Sex: Female

DRUGS (2)
  1. AZELASTINE. [Concomitant]
     Active Substance: AZELASTINE HYDROCHLORIDE
     Route: 045
  2. SYMBICORT [Suspect]
     Active Substance: BUDESONIDE\FORMOTEROL FUMARATE DIHYDRATE
     Indication: ASTHMA
     Dosage: 160/4.5 MCG, TWO PUFFS TWICE DAILY
     Route: 055
     Dates: start: 202005

REACTIONS (5)
  - Dyspnoea [Unknown]
  - Fatigue [Unknown]
  - Intentional device misuse [Unknown]
  - Drug delivery system issue [Unknown]
  - Rhinitis [Unknown]
